FAERS Safety Report 21639517 (Version 1)
Quarter: 2022Q4

REPORT INFORMATION
  Report Type: Report from Study
  Country: US (occurrence: US)
  Receive Date: 20221124
  Receipt Date: 20221124
  Transmission Date: 20230113
  Serious: No
  Sender: FDA-Public Use
  Company Number: US-ABBVIE-4163615

PATIENT
  Sex: Female

DRUGS (4)
  1. HUMIRA [Suspect]
     Active Substance: ADALIMUMAB
     Indication: Hidradenitis
     Route: 058
  2. Pfizer biontech [Concomitant]
     Indication: COVID-19 immunisation
     Dosage: 1ST DOSE
     Route: 030
     Dates: start: 20210401, end: 20210401
  3. Pfizer biontech [Concomitant]
     Indication: COVID-19 immunisation
     Dosage: 2ND DOSE
     Dates: start: 20211001, end: 20211001
  4. Pfizer biontech [Concomitant]
     Indication: COVID-19 immunisation
     Dosage: 3RD DOSE
     Dates: start: 20221001, end: 20221001

REACTIONS (1)
  - Muscle spasms [Unknown]
